FAERS Safety Report 8007713-3 (Version None)
Quarter: 2011Q4

REPORT INFORMATION
  Report Type: 
  Country: None (occurrence: None)
  Receive Date: 20111227
  Receipt Date: 20110713
  Transmission Date: 20120403
  Serious: No
  Sender: FDA-Public Use
  Company Number: US-ABBOTT-11P-163-0709287-00

PATIENT
  Sex: Male
  Weight: 81.72 kg

DRUGS (4)
  1. LUPRON DEPOT [Suspect]
     Indication: PROSTATE CANCER
     Dates: start: 20090701, end: 20110301
  2. SALSALATE [Concomitant]
     Indication: INFLAMMATION
  3. OMEPRAZOLE [Concomitant]
     Indication: GASTROOESOPHAGEAL REFLUX DISEASE
  4. UNKNOWN VITAMINS AND MINERALS [Concomitant]
     Indication: MACULAR DEGENERATION

REACTIONS (5)
  - PAIN [None]
  - DIZZINESS [None]
  - TESTICULAR PAIN [None]
  - SKIN PAPILLOMA [None]
  - GAIT DISTURBANCE [None]
